FAERS Safety Report 8882177 (Version 3)
Quarter: 2013Q1

REPORT INFORMATION
  Report Type: Spontaneous
  Country: US (occurrence: US)
  Receive Date: 20121105
  Receipt Date: 20130201
  Transmission Date: 20140127
  Serious: No
  Sender: FDA-Public Use
  Company Number: US-009507513-1211USA000868

PATIENT
  Sex: Female
  Weight: 84.49 kg

DRUGS (1)
  1. IMPLANON [Suspect]
     Indication: CONTRACEPTION
     Dosage: 1 STANDARD DOSE OF 1
     Route: 059
     Dates: start: 20111129

REACTIONS (2)
  - Amenorrhoea [Not Recovered/Not Resolved]
  - Device breakage [Unknown]
